FAERS Safety Report 5944763-2 (Version None)
Quarter: 2008Q4

REPORT INFORMATION
  Report Type: 
  Country: None (occurrence: None)
  Receive Date: 20081106
  Receipt Date: 20081106
  Transmission Date: 20090506
  Serious: Yes (Life-Threatening, Hospitalization)
  Sender: FDA-Public Use
  Company Number: None

PATIENT
  Age: 89 Year
  Sex: Female

DRUGS (1)
  1. RANIBIZUMAB 10MG/ML GENENTECH [Suspect]
     Indication: MACULAR DEGENERATION
     Dosage: 0.5MG MONTHLY INTRAOCULAR
     Route: 031
     Dates: start: 20081008, end: 20081008

REACTIONS (1)
  - CEREBROVASCULAR ACCIDENT [None]
